FAERS Safety Report 5410913-X (Version None)
Quarter: 2007Q3

REPORT INFORMATION
  Report Type: 
  Country: None (occurrence: None)
  Receive Date: 20070809
  Receipt Date: 20070809
  Transmission Date: 20080115
  Serious: Yes (Life-Threatening)
  Sender: FDA-Public Use
  Company Number: None

PATIENT
  Age: 37 Year
  Sex: Male
  Weight: 79.3795 kg

DRUGS (1)
  1. ACCUTANE [Suspect]
     Indication: ACNE
     Dosage: 2 A DAY FOR 8 MOTHS
     Dates: start: 19850101, end: 19851002

REACTIONS (7)
  - CARDIAC DISORDER [None]
  - CONVULSION [None]
  - FACIAL PAIN [None]
  - MIGRAINE [None]
  - SUICIDAL IDEATION [None]
  - SUICIDE ATTEMPT [None]
  - UNEVALUABLE EVENT [None]
